FAERS Safety Report 11595427 (Version 1)
Quarter: 2015Q4

REPORT INFORMATION
  Report Type: Spontaneous
  Country: US (occurrence: None)
  Receive Date: 20151005
  Receipt Date: 20151005
  Transmission Date: 20160304
  Serious: Yes (Death)
  Sender: FDA-Public Use
  Company Number: None

PATIENT
  Age: 69 Year
  Sex: Male
  Weight: 77.8 kg

DRUGS (16)
  1. VINCRISTINE SULFATE. [Suspect]
     Active Substance: VINCRISTINE SULFATE
     Dates: start: 20150910
  2. CYCLOPHOSPHAMIDE. [Suspect]
     Active Substance: CYCLOPHOSPHAMIDE
     Dates: start: 20150910
  3. PREDNISONE. [Suspect]
     Active Substance: PREDNISONE
     Dates: start: 20150914
  4. APIXABAN [Concomitant]
     Active Substance: APIXABAN
  5. DOXORUBICINE HYDROCHLORIDE [Suspect]
     Active Substance: DOXORUBICIN HYDROCHLORIDE
     Dates: start: 20150910
  6. BENICAR [Concomitant]
     Active Substance: OLMESARTAN MEDOXOMIL
  7. EPLERENONE. [Concomitant]
     Active Substance: EPLERENONE
  8. FLUTICASONE [Concomitant]
     Active Substance: FLUTICASONE\FLUTICASONE PROPIONATE
  9. FUROSEMIDE. [Concomitant]
     Active Substance: FUROSEMIDE
  10. HYTRIN [Concomitant]
     Active Substance: TERAZOSIN HYDROCHLORIDE
  11. RITUXIMAB [Suspect]
     Active Substance: RITUXIMAB
     Dates: start: 20150910
  12. CLONIDINE. [Concomitant]
     Active Substance: CLONIDINE
  13. BYSTOLIC [Concomitant]
     Active Substance: NEBIVOLOL HYDROCHLORIDE
  14. APRESOLINE HYDROCHLORIDE [Concomitant]
     Active Substance: HYDRALAZINE HYDROCHLORIDE
  15. ATORVASTATIN [Concomitant]
     Active Substance: ATORVASTATIN
  16. FERROUS SULFATE [Concomitant]
     Active Substance: FERROUS SULFATE\FERROUS SULFATE, DRIED

REACTIONS (1)
  - Death [None]

NARRATIVE: CASE EVENT DATE: 20150925
